FAERS Safety Report 6656419-1 (Version None)
Quarter: 2010Q1

REPORT INFORMATION
  Report Type: 
  Country: None (occurrence: None)
  Receive Date: 20100326
  Receipt Date: 20100326
  Transmission Date: 20100710
  Serious: Yes (Other)
  Sender: FDA-Public Use
  Company Number: None

PATIENT
  Age: 62 Year
  Sex: Male
  Weight: 83.9154 kg

DRUGS (1)
  1. RECLAST [Suspect]
     Indication: OSTEOPOROSIS
     Dosage: 5MG/100ML 1 041
     Dates: start: 20100312

REACTIONS (4)
  - CHILLS [None]
  - CONFUSIONAL STATE [None]
  - DELIRIUM [None]
  - MYALGIA [None]
